FAERS Safety Report 7176976-9 (Version None)
Quarter: 2010Q4

REPORT INFORMATION
  Report Type: 
  Country: None (occurrence: None)
  Receive Date: 20101220
  Receipt Date: 20100118
  Transmission Date: 20110411
  Serious: No
  Sender: FDA-Public Use
  Company Number: US-ABBOTT-10P-163-0620117-00

PATIENT
  Sex: Female
  Weight: 55.842 kg

DRUGS (3)
  1. ADVICOR [Suspect]
     Indication: HIGH DENSITY LIPOPROTEIN DECREASED
     Dates: end: 20091101
  2. ADVICOR [Suspect]
     Indication: BLOOD CHOLESTEROL INCREASED
  3. ASPIRIN [Concomitant]
     Indication: PARAESTHESIA

REACTIONS (1)
  - SLUGGISHNESS [None]
